FAERS Safety Report 8381239-X (Version None)
Quarter: 2012Q2

REPORT INFORMATION
  Report Type: 
  Country: None (occurrence: None)
  Receive Date: 20120523
  Receipt Date: 20120518
  Transmission Date: 20120825
  Serious: No
  Sender: FDA-Public Use
  Company Number: US-PFIZER INC-2012121479

PATIENT
  Sex: Female
  Weight: 52.154 kg

DRUGS (2)
  1. SYNTHROID [Suspect]
     Indication: THYROIDECTOMY
     Dosage: 0.2 MG, DAILY
     Dates: start: 19810101
  2. XANAX [Suspect]
     Indication: STRESS
     Dosage: 0.5 MG, AS NEEDED

REACTIONS (3)
  - STRESS [None]
  - DIZZINESS [None]
  - DRUG INEFFECTIVE [None]
